FAERS Safety Report 5549515-3 (Version None)
Quarter: 2007Q4

REPORT INFORMATION
  Report Type: 
  Country: None (occurrence: None)
  Receive Date: 20071212
  Receipt Date: 20071204
  Transmission Date: 20080405
  Serious: Yes (Hospitalization)
  Sender: FDA-Public Use
  Company Number: PHBS2007DE20367

PATIENT
  Age: 27 Year
  Sex: Female

DRUGS (1)
  1. PRAVIDEL [Suspect]
     Dosage: 25 MG, ONCE/SINGLE
     Route: 048
     Dates: start: 20071122, end: 20071122

REACTIONS (5)
  - CIRCULATORY COLLAPSE [None]
  - HYPOTENSION [None]
  - INTENTIONAL OVERDOSE [None]
  - NAUSEA [None]
  - VOMITING [None]
